FAERS Safety Report 10961163 (Version 2)
Quarter: 2015Q1

REPORT INFORMATION
  Report Type: Report from Study
  Country: DE (occurrence: DE)
  Receive Date: 20150327
  Receipt Date: 20150331
  Transmission Date: 20150721
  Serious: Yes (Hospitalization)
  Sender: FDA-Public Use
  Company Number: DE-TEVA-549275GER

PATIENT
  Age: 49 Year
  Sex: Female
  Weight: 84 kg

DRUGS (9)
  1. EMEND [Concomitant]
     Active Substance: APREPITANT
     Dosage: TOTAL DAILY DOSE: 125/80 (UNIT NOT SPECIFIED)
     Dates: start: 20150123, end: 20150301
  2. CARBOPLATIN. [Suspect]
     Active Substance: CARBOPLATIN
     Indication: BREAST CANCER FEMALE
     Route: 042
  3. ALOXI [Concomitant]
     Active Substance: PALONOSETRON HYDROCHLORIDE
     Dosage: 250 UNKNOWN DAILY;
     Dates: start: 20150123, end: 20150227
  4. RANITIDIN [Concomitant]
     Active Substance: RANITIDINE HYDROCHLORIDE
     Dosage: 50 UNKNOWN DAILY;
     Dates: start: 20150123, end: 20150226
  5. MYOCET [Suspect]
     Active Substance: DOXORUBICIN
     Indication: BREAST CANCER FEMALE
     Dosage: LAST DOSE PRIOR TO SAE: 27-FEB-2015
     Route: 042
     Dates: start: 20150123
  6. DEXAMETHASONE. [Concomitant]
     Active Substance: DEXAMETHASONE
     Dosage: TOTAL DAILY DOSE: 16/8/8 (UNIT NOT SPECIFIED)
     Dates: start: 20150123, end: 20150301
  7. TAVEGIL [Concomitant]
     Active Substance: CLEMASTINE FUMARATE
     Dosage: 50 UNKNOWN DAILY;
     Dates: start: 20150123, end: 20150226
  8. PACLITAXEL. [Suspect]
     Active Substance: PACLITAXEL
     Indication: BREAST CANCER FEMALE
     Dosage: LAST DOSE PRIOR TO SAE: 27-FEB-2015
     Route: 042
     Dates: start: 20150123
  9. PANTOZOL 20 MG [Concomitant]

REACTIONS (1)
  - Somatoform disorder [Recovered/Resolved]

NARRATIVE: CASE EVENT DATE: 20150305
